FAERS Safety Report 8971543 (Version 1)
Quarter: 2012Q4

REPORT INFORMATION
  Report Type: 
  Country: BR (occurrence: BR)
  Receive Date: 20121217
  Receipt Date: 20121217
  Transmission Date: 20130627
  Serious: Yes (Hospitalization)
  Sender: FDA-Public Use
  Company Number: BR-US-EMD SERONO, INC.-7180729

PATIENT
  Age: 7 None
  Sex: Male

DRUGS (2)
  1. SAIZEN [Suspect]
     Indication: GROWTH HORMONE DEFICIENCY
     Dosage: 8mg (24UI)
     Dates: start: 20111017
  2. SAIZEN [Suspect]

REACTIONS (6)
  - Gastrointestinal disorder [Unknown]
  - Headache [Recovered/Resolved]
  - Pyrexia [Unknown]
  - Abdominal pain [Unknown]
  - Bacterial infection [Recovered/Resolved]
  - Drug ineffective [Recovered/Resolved]
